FAERS Safety Report 22620343 (Version 1)
Quarter: 2023Q2

REPORT INFORMATION
  Report Type: Spontaneous
  Country: PL (occurrence: PL)
  Receive Date: 20230620
  Receipt Date: 20230620
  Transmission Date: 20230721
  Serious: Yes (Other)
  Sender: FDA-Public Use
  Company Number: PL-AMGEN-POLSP2023090111

PATIENT
  Age: 59 Year
  Sex: Female

DRUGS (6)
  1. FLUOROURACIL [Suspect]
     Active Substance: FLUOROURACIL
     Indication: Colorectal cancer
     Dosage: UNK
     Route: 065
     Dates: start: 20211201
  2. IRINOTECAN [Suspect]
     Active Substance: IRINOTECAN
     Indication: Colorectal cancer
     Dosage: UNK
     Route: 065
     Dates: start: 20211201, end: 2022
  3. LEUCOVORIN [Suspect]
     Active Substance: LEUCOVORIN
     Indication: Colorectal cancer
     Dosage: UNK
     Route: 065
     Dates: start: 20211201
  4. PANITUMUMAB [Suspect]
     Active Substance: PANITUMUMAB
     Indication: Colorectal cancer metastatic
     Dosage: UNK, DOSE REDUCED
     Route: 065
     Dates: start: 2022, end: 20221202
  5. PANITUMUMAB [Suspect]
     Active Substance: PANITUMUMAB
     Dosage: UNK
     Route: 065
     Dates: start: 20211201
  6. OXALIPLATIN [Suspect]
     Active Substance: OXALIPLATIN
     Indication: Colorectal cancer
     Dosage: UNK
     Route: 065
     Dates: start: 2023

REACTIONS (8)
  - Colorectal cancer metastatic [Unknown]
  - Pulmonary embolism [Unknown]
  - Skin toxicity [Unknown]
  - Scab [Recovering/Resolving]
  - Papule [Recovering/Resolving]
  - Skin ulcer [Recovering/Resolving]
  - Erythema [Recovering/Resolving]
  - Diarrhoea [Unknown]

NARRATIVE: CASE EVENT DATE: 20220101
